FAERS Safety Report 8382216-5 (Version None)
Quarter: 2012Q2

REPORT INFORMATION
  Report Type: 
  Country: None (occurrence: None)
  Receive Date: 20120524
  Receipt Date: 20120523
  Transmission Date: 20120825
  Serious: Yes (Other)
  Sender: FDA-Public Use
  Company Number: US-PFIZER INC-2012125183

PATIENT
  Sex: Female
  Weight: 81.633 kg

DRUGS (1)
  1. ZOLOFT [Suspect]
     Indication: EMOTIONAL DISORDER
     Dosage: 100 MG, 2X/DAY
     Route: 048
     Dates: end: 20120501

REACTIONS (2)
  - EMOTIONAL DISORDER [None]
  - MALAISE [None]
